FAERS Safety Report 8329030-4 (Version None)
Quarter: 2012Q2

REPORT INFORMATION
  Report Type: 
  Country: None (occurrence: None)
  Receive Date: 20120502
  Receipt Date: 20120418
  Transmission Date: 20120825
  Serious: Yes (Other)
  Sender: FDA-Public Use
  Company Number: FR-AMGEN-FRASP2012021408

PATIENT
  Age: 20 Year
  Sex: Female
  Weight: 60 kg

DRUGS (2)
  1. ENBREL [Suspect]
     Indication: PSORIASIS
     Dosage: 50 MG, 2X/WEEK
     Dates: start: 20120319, end: 20120409
  2. ENBREL [Suspect]
     Dosage: UNK
     Dates: end: 20120409

REACTIONS (13)
  - LOSS OF CONSCIOUSNESS [None]
  - MALAISE [None]
  - LYMPH NODE PALPABLE [None]
  - INJECTION SITE WARMTH [None]
  - INJECTION SITE INDURATION [None]
  - CHILLS [None]
  - INJECTION SITE HAEMORRHAGE [None]
  - INJECTION SITE INFLAMMATION [None]
  - FATIGUE [None]
  - FEELING HOT [None]
  - INJECTION SITE ERYTHEMA [None]
  - INJECTION SITE PAIN [None]
  - INJECTION SITE REACTION [None]
